FAERS Safety Report 7801112-2 (Version None)
Quarter: 2011Q4

REPORT INFORMATION
  Report Type: 
  Country: None (occurrence: None)
  Receive Date: 20111007
  Receipt Date: 20110928
  Transmission Date: 20120403
  Serious: No
  Sender: FDA-Public Use
  Company Number: US-BIOGENIDEC-2011BI037315

PATIENT
  Sex: Female

DRUGS (1)
  1. TYSABRI [Suspect]
     Indication: MULTIPLE SCLEROSIS
     Route: 042
     Dates: start: 20080716

REACTIONS (10)
  - EAR CONGESTION [None]
  - IMMUNE SYSTEM DISORDER [None]
  - GAIT DISTURBANCE [None]
  - COUGH [None]
  - IMPAIRED HEALING [None]
  - NASOPHARYNGITIS [None]
  - MOBILITY DECREASED [None]
  - STRESS [None]
  - NASAL CONGESTION [None]
  - BALANCE DISORDER [None]
